FAERS Safety Report 12205072 (Version 1)
Quarter: 2016Q1

REPORT INFORMATION
  Report Type: Spontaneous
  Country: US (occurrence: US)
  Receive Date: 20160323
  Receipt Date: 20160323
  Transmission Date: 20160526
  Serious: Yes (Hospitalization)
  Sender: FDA-Public Use
  Company Number: US-UNITED THERAPEUTICS-UNT-2016-004370

PATIENT
  Sex: Female

DRUGS (1)
  1. TYVASO [Suspect]
     Active Substance: TREPROSTINIL
     Indication: PULMONARY ARTERIAL HYPERTENSION
     Dosage: 54 ?G, QID
     Dates: start: 20141018

REACTIONS (2)
  - Therapy cessation [Unknown]
  - Intestinal mass [Unknown]

NARRATIVE: CASE EVENT DATE: 201603
